FAERS Safety Report 17109351 (Version 5)
Quarter: 2020Q1

REPORT INFORMATION
  Report Type: Spontaneous
  Country: JP (occurrence: JP)
  Receive Date: 20191204
  Receipt Date: 20200221
  Transmission Date: 20200409
  Serious: Yes (Other)
  Sender: FDA-Public Use
  Company Number: JP-ASTELLAS-2019JP027113

PATIENT
  Age: 15 Year
  Sex: Male
  Weight: 40 kg

DRUGS (11)
  1. PROGRAF [Suspect]
     Active Substance: TACROLIMUS
     Indication: PROPHYLAXIS AGAINST GRAFT VERSUS HOST DISEASE
     Dosage: UNK UNK, UNKNOWN FREQ.
     Route: 048
  2. RAPIACTA [Concomitant]
     Active Substance: PERAMIVIR
     Dosage: UNK UNK, UNKNOWN FREQ.
     Route: 065
     Dates: start: 20200101, end: 20200101
  3. FAMOTIDINE. [Concomitant]
     Active Substance: FAMOTIDINE
     Indication: PRODUCT USED FOR UNKNOWN INDICATION
     Dosage: UNK UNK, UNKNOWN FREQ.
     Route: 065
  4. FLUCONAZOLE. [Concomitant]
     Active Substance: FLUCONAZOLE
     Indication: PRODUCT USED FOR UNKNOWN INDICATION
     Dosage: UNK UNK, UNKNOWN FREQ.
     Route: 065
  5. ACETAMINOPHEN. [Concomitant]
     Active Substance: ACETAMINOPHEN
     Indication: PYREXIA
     Dosage: UNK UNK, UNKNOWN FREQ.
     Route: 065
  6. PREDONINE [Concomitant]
     Active Substance: PREDNISOLONE
     Indication: PRODUCT USED FOR UNKNOWN INDICATION
     Dosage: UNK UNK, UNKNOWN FREQ.
     Route: 065
  7. PREDONINE [Concomitant]
     Active Substance: PREDNISOLONE
     Dosage: 2 MG/DAY, UNKNOWN FREQ.
     Route: 065
     Dates: start: 20191225, end: 20200106
  8. RAPIACTA [Concomitant]
     Active Substance: PERAMIVIR
     Indication: INFLUENZA
     Dosage: UNK UNK, UNKNOWN FREQ.
     Route: 065
     Dates: start: 20191227, end: 20191227
  9. BLINCYTO [Suspect]
     Active Substance: BLINATUMOMAB
     Dosage: 5 UG/M^2, UNKNOWN FREQ.
     Route: 041
     Dates: start: 20200115, end: 20200121
  10. BENAMBAX [Concomitant]
     Active Substance: PENTAMIDINE
     Indication: PRODUCT USED FOR UNKNOWN INDICATION
     Dosage: UNK UNK, UNKNOWN FREQ.
     Route: 065
  11. BLINCYTO [Suspect]
     Active Substance: BLINATUMOMAB
     Indication: ACUTE LYMPHOCYTIC LEUKAEMIA
     Dosage: 5 UG/M^2, UNKNOWN FREQ.
     Route: 041
     Dates: start: 20191023, end: 20191227

REACTIONS (5)
  - Cytokine release syndrome [Recovered/Resolved]
  - Influenza [Recovered/Resolved]
  - Catheter site haemorrhage [Recovered/Resolved]
  - Cytokine release syndrome [Recovered/Resolved]
  - Cytokine release syndrome [Recovered/Resolved]

NARRATIVE: CASE EVENT DATE: 20191024
